FAERS Safety Report 14665549 (Version 1)
Quarter: 2018Q1

REPORT INFORMATION
  Report Type: Spontaneous
  Country: US (occurrence: US)
  Receive Date: 20180321
  Receipt Date: 20180321
  Transmission Date: 20180509
  Serious: Yes (Other)
  Sender: FDA-Public Use
  Company Number: US-BAUSCH-BL-2018-000424

PATIENT
  Sex: Male

DRUGS (2)
  1. EQUATE ARTIFICIAL TEARS [Suspect]
     Active Substance: GLYCERIN\HYPROMELLOSES\POLYETHYLENE GLYCOL 400
     Route: 065
  2. EQUATE ARTIFICIAL TEARS [Suspect]
     Active Substance: GLYCERIN\HYPROMELLOSES\POLYETHYLENE GLYCOL 400
     Indication: CATARACT
     Route: 047
     Dates: start: 20171231, end: 20171231

REACTIONS (3)
  - Surgery [Unknown]
  - Ill-defined disorder [Unknown]
  - Diplopia [Recovered/Resolved]

NARRATIVE: CASE EVENT DATE: 2018
